FAERS Safety Report 9060978 (Version 2)
Quarter: 2013Q1

REPORT INFORMATION
  Report Type: Spontaneous
  Country: US (occurrence: US)
  Receive Date: 20130204
  Receipt Date: 20130226
  Transmission Date: 20140127
  Serious: Yes (Death, Hospitalization)
  Sender: FDA-Public Use
  Company Number: US-ELI_LILLY_AND_COMPANY-US201301009646

PATIENT
  Age: 55 None
  Sex: Female
  Weight: 80 kg

DRUGS (1)
  1. ADCIRCA [Suspect]
     Indication: PULMONARY HYPERTENSION
     Dosage: 20 MG, QD
     Route: 048
     Dates: start: 20121204, end: 20130129

REACTIONS (12)
  - Respiratory failure [Fatal]
  - Renal failure [Fatal]
  - Hepatic failure [Fatal]
  - Aortic stenosis [Fatal]
  - Pulmonary hypertension [Fatal]
  - Upper gastrointestinal haemorrhage [Fatal]
  - Coagulopathy [Fatal]
  - Haemodynamic instability [Unknown]
  - Lactic acidosis [Unknown]
  - Pneumonia [Unknown]
  - Thrombocytopenia [Unknown]
  - Coronary artery disease [Unknown]
